FAERS Safety Report 6150109-X (Version None)
Quarter: 2009Q2

REPORT INFORMATION
  Report Type: 
  Country: None (occurrence: None)
  Receive Date: 20090407
  Receipt Date: 20090327
  Transmission Date: 20091009
  Serious: Yes (Hospitalization)
  Sender: FDA-Public Use
  Company Number: 2009EU001339

PATIENT
  Age: 64 Year
  Sex: Male

DRUGS (1)
  1. VESIKUR(SOLIFENACIN0 TABLET, 10MG [Suspect]
     Indication: URINARY INCONTINENCE
     Dosage: 10 MG, ORAL
     Route: 048
     Dates: start: 20081201, end: 20090123

REACTIONS (2)
  - BLADDER NECK OBSTRUCTION [None]
  - DYSURIA [None]
